FAERS Safety Report 7145950-0 (Version None)
Quarter: 2010Q4

REPORT INFORMATION
  Report Type: 
  Country: None (occurrence: None)
  Receive Date: 20101208
  Receipt Date: 20101124
  Transmission Date: 20110411
  Serious: Yes (Other)
  Sender: FDA-Public Use
  Company Number: CA-ELI_LILLY_AND_COMPANY-CA201010004461

PATIENT
  Age: 68 Year
  Sex: Female

DRUGS (12)
  1. FORTEO [Suspect]
     Indication: OSTEOPOROSIS
     Dosage: 20 UG, DAILY (1/D)
     Route: 058
     Dates: start: 20091109
  2. PERCOCET [Concomitant]
  3. AVAPRO [Concomitant]
  4. EURO-FER [Concomitant]
  5. FOLIC ACID [Concomitant]
  6. LEFLUNOMIDE [Concomitant]
  7. PREDNISONE [Concomitant]
  8. COZAAR [Concomitant]
  9. VITAMIN D [Concomitant]
  10. C-VITAMIN [Concomitant]
  11. CALCIUM [Concomitant]
  12. MULTI-VITAMIN [Concomitant]

REACTIONS (12)
  - ARTHRALGIA [None]
  - BLOOD POTASSIUM DECREASED [None]
  - DEVICE ISSUE [None]
  - DIARRHOEA [None]
  - FATIGUE [None]
  - GAIT DISTURBANCE [None]
  - KNEE ARTHROPLASTY [None]
  - NAUSEA [None]
  - OEDEMA PERIPHERAL [None]
  - PAIN IN EXTREMITY [None]
  - VOMITING [None]
  - WEIGHT DECREASED [None]
